FAERS Safety Report 7668753-7 (Version None)
Quarter: 2011Q3

REPORT INFORMATION
  Report Type: 
  Country: None (occurrence: None)
  Receive Date: 20110808
  Receipt Date: 20110802
  Transmission Date: 20111222
  Serious: Yes (Other)
  Sender: FDA-Public Use
  Company Number: US-PFIZER INC-2011173124

PATIENT
  Sex: Female
  Weight: 83.9 kg

DRUGS (4)
  1. PERCOCET [Concomitant]
     Indication: BACK PAIN
     Dosage: DAILY
  2. IBUPROFEN [Concomitant]
     Dosage: UNK
  3. LYRICA [Suspect]
     Indication: NERVE INJURY
     Dosage: 600 MG DAILY
     Route: 048
     Dates: start: 20070101
  4. MELOXICAM [Concomitant]
     Dosage: 7.5 MG

REACTIONS (2)
  - WITHDRAWAL SYNDROME [None]
  - INFLUENZA LIKE ILLNESS [None]
